FAERS Safety Report 16415571 (Version 1)
Quarter: 2019Q2

REPORT INFORMATION
  Report Type: Spontaneous
  Country: US (occurrence: US)
  Receive Date: 20190611
  Receipt Date: 20190611
  Transmission Date: 20190711
  Serious: No
  Sender: FDA-Public Use
  Company Number: US-AMGEN-USASP2019090354

PATIENT
  Age: 79 Year
  Sex: Female

DRUGS (11)
  1. DIAZEPAM. [Concomitant]
     Active Substance: DIAZEPAM
     Dosage: 5 MILLIGRAM
  2. SYNTHROID [Concomitant]
     Active Substance: LEVOTHYROXINE SODIUM
     Dosage: 100 MICROGRAM
  3. CANDESARTAN CILEXETIL. [Concomitant]
     Active Substance: CANDESARTAN CILEXETIL
     Dosage: UNK
  4. RESTASIS [Concomitant]
     Active Substance: CYCLOSPORINE
     Dosage: 0.05 PERCENT
  5. LOSARTAN POTASSSIUM [Concomitant]
     Dosage: 25 MILLIGRAM
  6. ZETIA [Concomitant]
     Active Substance: EZETIMIBE
     Dosage: 10 MILLIGRAM
  7. REPATHA [Suspect]
     Active Substance: EVOLOCUMAB
     Indication: MYOCARDIAL ISCHAEMIA
     Dosage: 140 MILLIGRAM, Q2WK
     Route: 058
     Dates: start: 20170120
  8. MEDROXYPROGESTERONE ACETATE. [Concomitant]
     Active Substance: MEDROXYPROGESTERONE ACETATE
     Dosage: 2.5 MILLIGRAM
  9. METOPROLOL. [Concomitant]
     Active Substance: METOPROLOL
     Dosage: 5 MILLIGRAM
  10. PREMARIN [Concomitant]
     Active Substance: ESTROGENS, CONJUGATED
     Dosage: 0.625 MILLIGRAM
  11. SIMVASTATIN. [Concomitant]
     Active Substance: SIMVASTATIN
     Dosage: 20 MILLIGRAM

REACTIONS (1)
  - Limb injury [Not Recovered/Not Resolved]
